FAERS Safety Report 4858981-8 (Version None)
Quarter: 2005Q4

REPORT INFORMATION
  Report Type: 
  Country: None (occurrence: None)
  Receive Date: 20051219
  Receipt Date: 20050831
  Transmission Date: 20060501
  Serious: No
  Sender: FDA-Public Use
  Company Number: US-GLAXOSMITHKLINE-A0572491A

PATIENT
  Age: 59 Year

DRUGS (1)
  1. NICODERM CQ [Suspect]

REACTIONS (2)
  - ASTHENIA [None]
  - TREMOR [None]
